FAERS Safety Report 9279756 (Version 1)
Quarter: 2013Q2

REPORT INFORMATION
  Report Type: Report from Study
  Country: US (occurrence: US)
  Receive Date: 20130509
  Receipt Date: 20130509
  Transmission Date: 20140414
  Serious: Yes (Other)
  Sender: FDA-Public Use
  Company Number: US-ROCHE-1215787

PATIENT
  Age: 60 Year
  Sex: Female
  Weight: 71.51 kg

DRUGS (6)
  1. ZELBORAF [Suspect]
     Indication: METASTATIC MALIGNANT MELANOMA
     Route: 048
     Dates: start: 20130326, end: 20130330
  2. ZELBORAF [Suspect]
     Route: 065
     Dates: start: 20130401
  3. CYMBALTA [Concomitant]
     Indication: DEPRESSION
     Route: 048
     Dates: start: 20130214
  4. LANSOPRAZOLE [Concomitant]
     Indication: GASTROOESOPHAGEAL REFLUX DISEASE
     Route: 048
     Dates: start: 20130214
  5. KEPPRA [Concomitant]
     Indication: CONVULSION
     Route: 048
     Dates: start: 20130214
  6. OXYCODONE [Concomitant]
     Indication: PAIN
     Route: 048
     Dates: start: 20130214

REACTIONS (6)
  - Rash [Recovering/Resolving]
  - Headache [Recovering/Resolving]
  - Melanocytic naevus [Recovering/Resolving]
  - Pruritus [Not Recovered/Not Resolved]
  - Glossodynia [Not Recovered/Not Resolved]
  - Dry skin [Not Recovered/Not Resolved]
